FAERS Safety Report 5535196-1 (Version None)
Quarter: 2007Q4

REPORT INFORMATION
  Report Type: 
  Country: None (occurrence: None)
  Receive Date: 20071206
  Receipt Date: 20071126
  Transmission Date: 20080405
  Serious: Yes (Hospitalization)
  Sender: FDA-Public Use
  Company Number: ES-JNJFOC-20071108898

PATIENT
  Age: 33 Year
  Sex: Female

DRUGS (5)
  1. ORTHO EVRA [Suspect]
     Indication: CONTRACEPTION
     Route: 062
  2. COULDINA [Suspect]
     Indication: INFLUENZA LIKE ILLNESS
     Route: 048
  3. NOLOTIL [Suspect]
     Indication: ARTHRALGIA
     Route: 048
  4. CEPHALOTIN SODIUM [Suspect]
     Indication: ANTIBIOTIC PROPHYLAXIS
     Route: 042
  5. CODEINE [Suspect]
     Indication: ARTHRALGIA
     Route: 048

REACTIONS (6)
  - ACHOLIA [None]
  - CHOLURIA [None]
  - HYPERBILIRUBINAEMIA [None]
  - JAUNDICE [None]
  - OEDEMA PERIPHERAL [None]
  - PRURITUS [None]
